FAERS Safety Report 21096717 (Version 3)
Quarter: 2022Q3

REPORT INFORMATION
  Report Type: Other
  Country: US (occurrence: None)
  Receive Date: 20220718
  Receipt Date: 20220906
  Transmission Date: 20221027
  Serious: Yes (Other)
  Sender: FDA-Public Use
  Company Number: US-ROCHE-3097575

PATIENT
  Age: 41 Year
  Sex: Female
  Weight: 84.072 kg

DRUGS (12)
  1. OCREVUS [Suspect]
     Active Substance: OCRELIZUMAB
     Indication: Relapsing-remitting multiple sclerosis
     Dosage: OFF FOR APPROXIMATELY 1-1.5 YEARS?DATE OF TREATMENT: 03/DEC/2018, 23/DEC/2019, 22/JUN/2020, 22/JUN/2
     Route: 042
     Dates: start: 201812
  2. OCREVUS [Suspect]
     Active Substance: OCRELIZUMAB
     Indication: Relapsing multiple sclerosis
     Route: 042
     Dates: start: 20220627
  3. OCREVUS [Suspect]
     Active Substance: OCRELIZUMAB
     Dosage: 600 MG IV Q 6 MONTHS; 1ST DOSE 6 MONTHS S/P INITIAL
     Route: 042
     Dates: start: 20220628
  4. EMGALITY [Concomitant]
     Active Substance: GALCANEZUMAB-GNLM
     Route: 058
  5. FOCALIN XR [Concomitant]
     Active Substance: DEXMETHYLPHENIDATE HYDROCHLORIDE
     Route: 048
  6. NORCO [Concomitant]
     Active Substance: ACETAMINOPHEN\HYDROCODONE BITARTRATE
     Route: 048
  7. PROTONIX [Concomitant]
     Active Substance: PANTOPRAZOLE SODIUM
     Route: 048
  8. TOVIAZ [Concomitant]
     Active Substance: FESOTERODINE FUMARATE
     Route: 048
  9. ZOFRAN [Concomitant]
     Active Substance: ONDANSETRON HYDROCHLORIDE
     Route: 048
  10. CELECOXIB [Concomitant]
     Active Substance: CELECOXIB
  11. MAXALT [Concomitant]
     Active Substance: RIZATRIPTAN BENZOATE
  12. CANNABIS SATIVA SUBSP. INDICA TOP [Concomitant]
     Active Substance: CANNABIS SATIVA SUBSP. INDICA TOP

REACTIONS (10)
  - Hypoaesthesia [Unknown]
  - Pain in extremity [Unknown]
  - Hemiparesis [Unknown]
  - Visual impairment [Unknown]
  - Fatigue [Unknown]
  - Gait disturbance [Unknown]
  - Pain [Unknown]
  - Chest pain [Unknown]
  - Adverse drug reaction [Unknown]
  - Pneumonia [Recovered/Resolved]

NARRATIVE: CASE EVENT DATE: 20220601
